FAERS Safety Report 8520964-4 (Version None)
Quarter: 2012Q3

REPORT INFORMATION
  Report Type: 
  Country: None (occurrence: None)
  Receive Date: 20120719
  Receipt Date: 20120712
  Transmission Date: 20120928
  Serious: Yes (Death)
  Sender: FDA-Public Use
  Company Number: GB-EISAI INC-E7389-02693-SPO-GB

PATIENT
  Age: 45 Year

DRUGS (1)
  1. HALAVEN [Suspect]
     Dosage: UNKNOWN
     Route: 041

REACTIONS (6)
  - PALLOR [None]
  - PLATELET COUNT DECREASED [None]
  - DYSPNOEA [None]
  - FATIGUE [None]
  - EPISTAXIS [None]
  - YELLOW SKIN [None]
